FAERS Safety Report 9059450 (Version 1)
Quarter: 2013Q1

REPORT INFORMATION
  Report Type: Spontaneous
  Country: US (occurrence: US)
  Receive Date: 20130212
  Receipt Date: 20130212
  Transmission Date: 20140127
  Serious: No
  Sender: FDA-Public Use
  Company Number: US-009507513-1302USA003099

PATIENT
  Age: 20 Year
  Sex: Female
  Weight: 79.37 kg

DRUGS (1)
  1. NUVARING [Suspect]
     Indication: CONTRACEPTION
     Dosage: 3 WEEKS INSERTED AND 1 WEEK RING FREE BREAK
     Route: 067
     Dates: start: 20130201

REACTIONS (3)
  - Anger [Unknown]
  - Feeling abnormal [Unknown]
  - Emotional disorder [Unknown]
